FAERS Safety Report 5420097-X (Version None)
Quarter: 2007Q3

REPORT INFORMATION
  Report Type: 
  Country: None (occurrence: None)
  Receive Date: 20070718
  Receipt Date: 20060623
  Transmission Date: 20080115
  Serious: Yes (Other)
  Sender: FDA-Public Use
  Company Number: 2006080007

PATIENT
  Age: 61 Year
  Sex: Male
  Weight: 78.9259 kg

DRUGS (1)
  1. CELEBREX [Suspect]
     Indication: BACK PAIN
     Dosage: 400 MG (200 MG,2 IN 1 D)

REACTIONS (1)
  - CEREBROVASCULAR ACCIDENT [None]
